FAERS Safety Report 13784033 (Version 4)
Quarter: 2018Q2

REPORT INFORMATION
  Report Type: Spontaneous
  Country: US (occurrence: US)
  Receive Date: 20170724
  Receipt Date: 20180418
  Transmission Date: 20180711
  Serious: No
  Sender: FDA-Public Use
  Company Number: US-INCYTE CORPORATION-2017IN005598

PATIENT

DRUGS (10)
  1. ASPIRIN                            /00002701/ [Concomitant]
     Active Substance: ASPIRIN
     Indication: PRODUCT USED FOR UNKNOWN INDICATION
     Route: 065
  2. JAKAFI [Suspect]
     Active Substance: RUXOLITINIB
     Indication: MYELOFIBROSIS
     Dosage: 15 MG, BID
     Route: 048
     Dates: start: 20140225
  3. JAKAFI [Suspect]
     Active Substance: RUXOLITINIB
     Indication: NEOPLASM MALIGNANT
     Dosage: 15 MG, BID
     Dates: start: 20140225
  4. VITAMIN D3 [Concomitant]
     Active Substance: CHOLECALCIFEROL
     Indication: PRODUCT USED FOR UNKNOWN INDICATION
     Route: 065
  5. JAKAFI [Suspect]
     Active Substance: RUXOLITINIB
     Dosage: 15 MG, BID
     Route: 048
     Dates: start: 20140225
  6. BESIVANCE [Concomitant]
     Active Substance: BESIFLOXACIN
     Indication: PRODUCT USED FOR UNKNOWN INDICATION
     Route: 065
  7. METAMUCIL                          /00091301/ [Concomitant]
     Active Substance: PSYLLIUM HUSK
     Indication: PRODUCT USED FOR UNKNOWN INDICATION
     Route: 065
  8. DUREZOL [Concomitant]
     Active Substance: DIFLUPREDNATE
     Indication: PRODUCT USED FOR UNKNOWN INDICATION
     Route: 065
  9. FOLIC ACID. [Concomitant]
     Active Substance: FOLIC ACID
     Indication: PRODUCT USED FOR UNKNOWN INDICATION
     Route: 065
  10. CYCLOPENTOL [Concomitant]
     Indication: PRODUCT USED FOR UNKNOWN INDICATION
     Route: 065

REACTIONS (3)
  - Drug dose omission [Unknown]
  - Fatigue [Not Recovered/Not Resolved]
  - Anaemia [Not Recovered/Not Resolved]
